FAERS Safety Report 16151511 (Version 1)
Quarter: 2019Q2

REPORT INFORMATION
  Report Type: Spontaneous
  Country: IE (occurrence: IE)
  Receive Date: 20190403
  Receipt Date: 20190403
  Transmission Date: 20190711
  Serious: Yes (Other)
  Sender: FDA-Public Use
  Company Number: IE-PFIZER INC-2019134998

PATIENT
  Age: 62 Year
  Sex: Female

DRUGS (7)
  1. REGURIN [Concomitant]
     Active Substance: TROSPIUM CHLORIDE
     Indication: POLLAKIURIA
     Dosage: 20 MG, ALTERNATE DAY, (COMMENCED NOV 2007. ONGOING MED)
     Route: 048
     Dates: start: 200711
  2. CARDURAXL [Concomitant]
     Active Substance: DOXAZOSIN MESYLATE
     Indication: HYPERTENSION
     Dosage: 8 MG, UNK,
     Route: 048
     Dates: start: 200612
  3. GLUCOPHAGE [Concomitant]
     Active Substance: METFORMIN HYDROCHLORIDE
     Indication: TYPE 2 DIABETES MELLITUS
     Dosage: LONG TERM MED. COMMENCED PRIOR TO 2003.
     Route: 048
  4. NU-SEALS [Concomitant]
     Indication: PROPHYLAXIS
     Dosage: 75 MG, 1X/DAY
     Route: 048
  5. LIPOSTAT [PRAVASTATIN SODIUM] [Concomitant]
     Indication: BLOOD CHOLESTEROL
     Dosage: 40 MG, DAILY, (NOCTE. COMMENCED PRIOR TO NOVEMBER 2006.)
     Route: 048
  6. CHAMPIX [Suspect]
     Active Substance: VARENICLINE TARTRATE
     Indication: SMOKING CESSATION THERAPY
     Dosage: 1 MG, ALTERNATE DAY
     Route: 048
     Dates: start: 20080212
  7. VENTOLIN [Concomitant]
     Active Substance: ALBUTEROL SULFATE
     Dosage: UNK UNK, AS NEEDED

REACTIONS (1)
  - Blood glucose abnormal [Recovered/Resolved]
